FAERS Safety Report 9589673 (Version 1)
Quarter: 2013Q4

REPORT INFORMATION
  Report Type: Spontaneous
  Country: US (occurrence: US)
  Receive Date: 20131003
  Receipt Date: 20131003
  Transmission Date: 20140711
  Serious: No
  Sender: FDA-Public Use
  Company Number: US-AMGEN-USASP2012071382

PATIENT
  Sex: Female
  Weight: 87.98 kg

DRUGS (7)
  1. ENBREL [Suspect]
     Indication: PSORIASIS
     Dosage: UNK UNK, QWK
     Route: 058
     Dates: start: 2010
  2. ENBREL [Suspect]
     Indication: PSORIATIC ARTHROPATHY
  3. LOTREL [Concomitant]
     Dosage: UNK
  4. METFORMIN [Concomitant]
     Dosage: UNK
  5. SIMVASTATIN [Concomitant]
     Dosage: UNK
  6. TRIAMCINOLONE [Concomitant]
     Dosage: UNK
  7. TYLENOL                            /00020001/ [Concomitant]
     Dosage: UNK

REACTIONS (2)
  - Injection site pain [Unknown]
  - Injection site bruising [Unknown]
